FAERS Safety Report 8568614-5 (Version None)
Quarter: 2012Q3

REPORT INFORMATION
  Report Type: 
  Country: None (occurrence: None)
  Receive Date: 20120803
  Receipt Date: 20120205
  Transmission Date: 20120928
  Serious: No
  Sender: FDA-Public Use
  Company Number: US-ABBOTT-12P-163-0902448-00

PATIENT
  Sex: Male
  Weight: 94.432 kg

DRUGS (5)
  1. CRESTOR [Concomitant]
     Indication: BLOOD CHOLESTEROL INCREASED
  2. NIASPAN [Suspect]
     Indication: HIGH DENSITY LIPOPROTEIN DECREASED
     Dates: start: 20120101
  3. MULTI-VITAMIN [Concomitant]
     Indication: VITAMIN SUPPLEMENTATION
  4. ASPIRIN [Concomitant]
     Indication: CARDIOVASCULAR EVENT PROPHYLAXIS
  5. FISH OIL [Concomitant]
     Indication: SUPPLEMENTATION THERAPY

REACTIONS (2)
  - PRURITUS GENERALISED [None]
  - FLUSHING [None]
